FAERS Safety Report 4943299-5 (Version None)
Quarter: 2006Q1

REPORT INFORMATION
  Report Type: 
  Country: None (occurrence: None)
  Receive Date: 20060314
  Receipt Date: 20060203
  Transmission Date: 20060701
  Serious: Yes (Other)
  Sender: FDA-Public Use
  Company Number: JP-ROCHE-437270

PATIENT
  Age: 8 Year
  Sex: Female

DRUGS (4)
  1. TAMIFLU [Suspect]
     Route: 048
     Dates: start: 20060119, end: 20060119
  2. ASVERIN [Concomitant]
     Dosage: TAKEN AS NEEDED
     Route: 048
     Dates: start: 20060119, end: 20060123
  3. MUCODYNE [Concomitant]
     Dosage: TAKEN AS NEEDED
     Route: 048
     Dates: start: 20060119, end: 20060123
  4. ALPINY [Concomitant]
     Route: 054
     Dates: start: 20060119, end: 20060123

REACTIONS (2)
  - ABNORMAL BEHAVIOUR [None]
  - PSYCHIATRIC SYMPTOM [None]
